FAERS Safety Report 5161032-1 (Version None)
Quarter: 2006Q4

REPORT INFORMATION
  Report Type: 
  Country: None (occurrence: None)
  Receive Date: 20061130
  Receipt Date: 20061124
  Transmission Date: 20070319
  Serious: Yes (Life-Threatening)
  Sender: FDA-Public Use
  Company Number: CL-BAYER-200615983GDS

PATIENT
  Age: 77 Year
  Sex: Female
  Weight: 61 kg

DRUGS (2)
  1. AVELOX [Suspect]
     Indication: CHRONIC OBSTRUCTIVE PULMONARY DISEASE
     Dosage: TOTAL DAILY DOSE: 400 MG  UNIT DOSE: 400 MG
     Route: 048
     Dates: start: 20061123, end: 20061123
  2. BUDASMAL [Concomitant]
     Indication: CHRONIC OBSTRUCTIVE PULMONARY DISEASE
     Dosage: UNIT DOSE: 400 ?G
     Route: 055

REACTIONS (6)
  - ANAPHYLACTIC REACTION [None]
  - CHEILITIS [None]
  - GLOSSITIS [None]
  - HYPERSENSITIVITY [None]
  - INFLAMMATION [None]
  - RASH [None]
